FAERS Safety Report 7115789 (Version 6)
Quarter: 2015Q2

REPORT INFORMATION
  Report Type: Report from Study
  Country: JP (occurrence: JP)
  Receive Date: 20090916
  Receipt Date: 20150430
  Transmission Date: 20150821
  Serious: Yes (Hospitalization, Other)
  Sender: FDA-Public Use
  Company Number: PHHY2009JP38019

PATIENT
  Age: 43 Year
  Sex: Female

DRUGS (2)
  1. TASIGNA [Suspect]
     Active Substance: NILOTINIB
     Dosage: 400 MG, BID
     Route: 048
     Dates: start: 20090526, end: 20100921
  2. TASIGNA [Suspect]
     Active Substance: NILOTINIB
     Indication: CHRONIC MYELOID LEUKAEMIA
     Dosage: 400 MG, BID
     Route: 048
     Dates: start: 20090414, end: 20090505

REACTIONS (8)
  - White blood cell count decreased [Recovered/Resolved]
  - Hyperbilirubinaemia [Recovered/Resolved]
  - Hyperglycaemia [Recovered/Resolved]
  - Blepharitis [Recovered/Resolved]
  - Rash [Recovered/Resolved]
  - Rash [Recovered/Resolved]
  - Drug ineffective [Unknown]
  - Basophil count increased [Recovered/Resolved]

NARRATIVE: CASE EVENT DATE: 20090502
